FAERS Safety Report 15440624 (Version 1)
Quarter: 2018Q3

REPORT INFORMATION
  Report Type: Spontaneous
  Country: US (occurrence: US)
  Receive Date: 20180925
  Receipt Date: 20180925
  Transmission Date: 20181010
  Serious: Yes (Life-Threatening, Hospitalization)
  Sender: FDA-Public Use
  Company Number: None

PATIENT
  Age: 35 Year
  Sex: Male
  Weight: 97.65 kg

DRUGS (1)
  1. UP AND UP NICOTINE POLACRILEX [Suspect]
     Active Substance: NICOTINE
     Indication: SMOKING CESSATION THERAPY
     Dosage: ?          QUANTITY:160 PIECES;?
     Route: 048
     Dates: start: 20180908, end: 20180910

REACTIONS (7)
  - Vomiting [None]
  - Poisoning [None]
  - Confusional state [None]
  - Suspected product contamination [None]
  - Nausea [None]
  - Incontinence [None]
  - Diarrhoea [None]

NARRATIVE: CASE EVENT DATE: 20180908
